FAERS Safety Report 4482272-0 (Version None)
Quarter: 2004Q4

REPORT INFORMATION
  Report Type: 
  Country: None (occurrence: None)
  Receive Date: 20041020
  Receipt Date: 20040924
  Transmission Date: 20050328
  Serious: No
  Sender: FDA-Public Use
  Company Number: USA040979296

PATIENT
  Age: 55 Year
  Sex: Male

DRUGS (1)
  1. CYMBALTA [Suspect]
     Indication: DEPRESSION
     Dates: end: 20040907

REACTIONS (6)
  - ANXIETY [None]
  - DECREASED APPETITE [None]
  - DELIRIUM TREMENS [None]
  - HEPATIC ENZYME INCREASED [None]
  - NAUSEA [None]
  - TREMOR [None]
